FAERS Safety Report 6587810-X (Version None)
Quarter: 2010Q1

REPORT INFORMATION
  Report Type: 
  Country: None (occurrence: None)
  Receive Date: 20100218
  Receipt Date: 20100208
  Transmission Date: 20100710
  Serious: Yes (Other)
  Sender: FDA-Public Use
  Company Number: PHHY2010US06532

PATIENT
  Sex: Male

DRUGS (3)
  1. AREDIA [Suspect]
     Dosage: 90 MG, QMO
  2. REVLIMID [Suspect]
     Indication: MULTIPLE MYELOMA
     Dosage: 25 MG DAILY
     Route: 048
     Dates: start: 20081201
  3. DRUG USED IN DIABETES [Concomitant]
     Indication: DIABETES MELLITUS

REACTIONS (4)
  - FUNGAL INFECTION [None]
  - GINGIVAL DISORDER [None]
  - OSTEONECROSIS [None]
  - WHITE BLOOD CELL COUNT DECREASED [None]
